FAERS Safety Report 10222448 (Version 1)
Quarter: 2014Q2

REPORT INFORMATION
  Report Type: Report from Study
  Country: AR (occurrence: AR)
  Receive Date: 20140606
  Receipt Date: 20140606
  Transmission Date: 20141212
  Serious: Yes (Hospitalization)
  Sender: FDA-Public Use
  Company Number: AR-US-EMD SERONO, INC.-7296853

PATIENT
  Age: 10 Year
  Sex: Female

DRUGS (1)
  1. SAIZEN [Suspect]
     Indication: GROWTH HORMONE DEFICIENCY
     Dates: start: 20120712, end: 201312

REACTIONS (2)
  - Syncope [Recovered/Resolved]
  - Convulsion [Recovered/Resolved]
